FAERS Safety Report 17576943 (Version 2)
Quarter: 2021Q2

REPORT INFORMATION
  Report Type: Spontaneous
  Country: FR (occurrence: FR)
  Receive Date: 20200324
  Receipt Date: 20210610
  Transmission Date: 20210716
  Serious: Yes (Other)
  Sender: FDA-Public Use
  Company Number: FR-MYLANLABS-2020M1031691

PATIENT
  Age: 44 Year
  Sex: Male
  Weight: 126 kg

DRUGS (4)
  1. TRAMADOL. [Suspect]
     Active Substance: TRAMADOL
     Indication: PAIN
     Dosage: UNK
     Route: 048
  2. TALTZ [Suspect]
     Active Substance: IXEKIZUMAB
     Indication: PSORIASIS
     Dosage: 1 DOSAGE FORM, QW
     Route: 058
     Dates: start: 201802, end: 20191129
  3. LERCAN [Suspect]
     Active Substance: LERCANIDIPINE
     Indication: HYPERTENSION
     Dosage: UNK
     Route: 048
  4. COLCHIMAX                          /01722001/ [Suspect]
     Active Substance: COLCHICINE\OPIUM\TIEMONIUM METHYLSULFATE
     Indication: GOUT
     Dosage: UNK
     Route: 048

REACTIONS (1)
  - Mixed anxiety and depressive disorder [Recovered/Resolved]

NARRATIVE: CASE EVENT DATE: 201905
